FAERS Safety Report 9722248 (Version 1)
Quarter: 2013Q4

REPORT INFORMATION
  Report Type: Spontaneous
  Country: ES (occurrence: ES)
  Receive Date: 20131202
  Receipt Date: 20131202
  Transmission Date: 20140711
  Serious: Yes (Other)
  Sender: FDA-Public Use
  Company Number: ES-JNJFOC-20131113872

PATIENT
  Sex: 0

DRUGS (3)
  1. DOXORUBICIN [Suspect]
     Indication: NEOPLASM MALIGNANT
     Route: 042
  2. LURBINECTEDIN [Suspect]
     Indication: NEOPLASM MALIGNANT
     Route: 065
  3. COLONY STIMULATING FACTOR [Suspect]
     Indication: PROPHYLAXIS
     Route: 065

REACTIONS (16)
  - Ejection fraction decreased [Unknown]
  - Febrile neutropenia [Unknown]
  - Bone marrow failure [Unknown]
  - Sepsis [Unknown]
  - Thrombocytopenia [Unknown]
  - Diarrhoea [Unknown]
  - Transaminases increased [Unknown]
  - Anaemia [Unknown]
  - Fatigue [Unknown]
  - Alopecia [Unknown]
  - Mucosal inflammation [Unknown]
  - Nausea [Unknown]
  - Vomiting [Unknown]
  - Diarrhoea [Unknown]
  - Decreased appetite [Unknown]
  - Constipation [Unknown]
